FAERS Safety Report 6622796-0 (Version None)
Quarter: 2010Q1

REPORT INFORMATION
  Report Type: 
  Country: None (occurrence: None)
  Receive Date: 20100305
  Receipt Date: 20100226
  Transmission Date: 20100710
  Serious: No
  Sender: FDA-Public Use
  Company Number: 2009SP035018

PATIENT
  Age: 17 Year
  Sex: Female

DRUGS (1)
  1. IMPLANON [Suspect]
     Indication: CONTRACEPTION
     Dates: start: 20091102

REACTIONS (4)
  - MUSCLE SPASMS [None]
  - PAIN [None]
  - SKIN DISCOLOURATION [None]
  - SLEEP DISORDER [None]
